FAERS Safety Report 5508322-8 (Version None)
Quarter: 2007Q4

REPORT INFORMATION
  Report Type: 
  Country: None (occurrence: None)
  Receive Date: 20071106
  Receipt Date: 20071102
  Transmission Date: 20080405
  Serious: Yes (Life-Threatening, Other)
  Sender: FDA-Public Use
  Company Number: US-BOEHRINGER INGELHEIM PHARMACEUTICALS, INC.-2007-BP-23848BP

PATIENT
  Sex: Male
  Weight: 76 kg

DRUGS (7)
  1. FLOMAX [Suspect]
     Indication: DRUG USE FOR UNKNOWN INDICATION
     Route: 065
  2. AVODART [Suspect]
     Indication: BENIGN PROSTATIC HYPERPLASIA
     Route: 048
  3. LISINOPRIL [Suspect]
  4. GLIMEPIRIDE [Concomitant]
  5. METOPROLOL SUCCINATE [Concomitant]
  6. GEMFIBROZIL [Concomitant]
  7. RANITIDINE HYDROCHLORIDE [Concomitant]

REACTIONS (2)
  - ANAPHYLACTIC REACTION [None]
  - SWOLLEN TONGUE [None]
